FAERS Safety Report 16225653 (Version 1)
Quarter: 2019Q2

REPORT INFORMATION
  Report Type: Spontaneous
  Country: FR (occurrence: FR)
  Receive Date: 20190422
  Receipt Date: 20190422
  Transmission Date: 20190711
  Serious: Yes (Hospitalization)
  Sender: FDA-Public Use
  Company Number: PHHY2019FR087317

PATIENT
  Age: 49 Year
  Sex: Male
  Weight: 64.4 kg

DRUGS (10)
  1. OLANZAPINE. [Suspect]
     Active Substance: OLANZAPINE
     Indication: TOXICITY TO VARIOUS AGENTS
     Dosage: 5 MG, TOTAL (0-0-1)
     Route: 048
     Dates: start: 20190304, end: 20190304
  2. PARACETAMOL [Concomitant]
     Active Substance: ACETAMINOPHEN
     Indication: PRODUCT USED FOR UNKNOWN INDICATION
     Dosage: 1 G, UNK (1-1-1) SB
     Route: 065
  3. ACTISKENAN [Suspect]
     Active Substance: MORPHINE SULFATE
     Indication: TOXICITY TO VARIOUS AGENTS
     Dosage: 30 MG, TOTAL
     Route: 048
     Dates: start: 20190304, end: 20190304
  4. ZOPICLONE [Suspect]
     Active Substance: ZOPICLONE
     Indication: TOXICITY TO VARIOUS AGENTS
     Dosage: 7.5 MG, TOTAL (0-0-0-1)
     Route: 048
     Dates: start: 20190304, end: 20190304
  5. TERALITHE [Suspect]
     Active Substance: LITHIUM CARBONATE
     Indication: TOXICITY TO VARIOUS AGENTS
     Dosage: 1400 MG, TOTAL (0-0-3.5)
     Route: 048
     Dates: start: 20190304, end: 20190304
  6. QUETIAPINE. [Suspect]
     Active Substance: QUETIAPINE
     Indication: TOXICITY TO VARIOUS AGENTS
     Dosage: 200 MG, TOTAL (0-0-4)
     Route: 048
     Dates: start: 20190304, end: 20190304
  7. PARKINANE [Suspect]
     Active Substance: TRIHEXYPHENIDYL HYDROCHLORIDE
     Indication: TOXICITY TO VARIOUS AGENTS
     Dosage: 5 MG, TOTAL (1-0-0)
     Route: 048
     Dates: start: 20190304, end: 20190304
  8. PRAZEPAM [Suspect]
     Active Substance: PRAZEPAM
     Indication: TOXICITY TO VARIOUS AGENTS
     Dosage: 50 MG, TOTAL (1-1-1-2)
     Route: 048
     Dates: start: 20190304, end: 20190304
  9. SKENAN [Suspect]
     Active Substance: MORPHINE SULFATE
     Indication: TOXICITY TO VARIOUS AGENTS
     Dosage: 60 MG, TOTAL
     Route: 048
     Dates: start: 20190304, end: 20190304
  10. LOXAPINE SUCCINATE. [Suspect]
     Active Substance: LOXAPINE SUCCINATE
     Indication: TOXICITY TO VARIOUS AGENTS
     Dosage: 50 MG, TOTAL (0-0-0-1)
     Route: 048
     Dates: start: 20190304, end: 20190304

REACTIONS (2)
  - Confusional state [Recovering/Resolving]
  - Toxicity to various agents [Recovering/Resolving]

NARRATIVE: CASE EVENT DATE: 20190304
